FAERS Safety Report 23317986 (Version 1)
Quarter: 2023Q4

REPORT INFORMATION
  Report Type: Spontaneous
  Country: CN (occurrence: CN)
  Receive Date: 20231219
  Receipt Date: 20231219
  Transmission Date: 20240109
  Serious: Yes (Other)
  Sender: FDA-Public Use
  Company Number: None

PATIENT
  Age: 52 Year
  Sex: Female
  Weight: 69.5 kg

DRUGS (5)
  1. CLINOLIPID [Suspect]
     Active Substance: OLIVE OIL\SOYBEAN OIL
     Indication: Nutritional supplementation
     Dosage: 250 ML, ONCE IN 11 DAYS (DOAGE FORM: INJECTION)
     Route: 041
     Dates: start: 20231023, end: 20231023
  2. ALANINE, DL-\ARGININE\CYSTEINE HYDROCHLORIDE\GLYCINE\HISTIDINE\ISOLEUC [Suspect]
     Active Substance: ALANINE, DL-\ARGININE\CYSTEINE HYDROCHLORIDE\GLYCINE\HISTIDINE\ISOLEUCINE\LEUCINE\LYSINE ACETATE\MET
     Indication: Nutritional supplementation
     Dosage: 500 ML, ONE TIME IN ONE DAY
     Route: 041
     Dates: start: 20231023, end: 20231023
  3. CALCIUM CHLORIDE\DEXTROSE\ELECTROLYTES NOS\FRUCTOSE\XYLITOL\ZINC SULFA [Suspect]
     Active Substance: CALCIUM CHLORIDE\DEXTROSE\ELECTROLYTES NOS\FRUCTOSE\XYLITOL\ZINC SULFATE
     Indication: Nutritional supplementation
     Dosage: 1000 ML, ONE TIME IN ONE DAY
     Route: 041
     Dates: start: 20231023, end: 20231023
  4. VITAMINS [Suspect]
     Active Substance: VITAMINS
     Indication: Nutritional supplementation
     Dosage: 1 BOTTLE, ONE TIME IN ONE DAY
     Route: 041
     Dates: start: 20231023, end: 20231023
  5. VITAMINS [Suspect]
     Active Substance: VITAMINS
     Indication: Nutritional supplementation
     Dosage: 1 BOTTLE, ONE TIME IN ONE DAY
     Route: 041
     Dates: start: 20231023, end: 20231023

REACTIONS (4)
  - Blood pressure increased [Recovering/Resolving]
  - Flushing [Recovering/Resolving]
  - Tachypnoea [Recovering/Resolving]
  - Sensation of foreign body [Recovering/Resolving]

NARRATIVE: CASE EVENT DATE: 20231023
